FAERS Safety Report 6694358-0 (Version None)
Quarter: 2010Q2

REPORT INFORMATION
  Report Type: 
  Country: None (occurrence: None)
  Receive Date: 20100423
  Receipt Date: 20100413
  Transmission Date: 20101027
  Serious: Yes (Other)
  Sender: FDA-Public Use
  Company Number: US-JNJCH-2010009449

PATIENT
  Age: 10 Year
  Sex: Female
  Weight: 27.2 kg

DRUGS (1)
  1. BENADRYL READY MIST ITCH STOPPING SPRAY [Suspect]
     Indication: ARTHROPOD BITE
     Dosage: TEXT:UNKNOWN
     Route: 061

REACTIONS (3)
  - APPLICATION SITE DISCOLOURATION [None]
  - APPLICATION SITE SCAR [None]
  - PRODUCT QUALITY ISSUE [None]
